FAERS Safety Report 11204119 (Version 2)
Quarter: 2015Q3

REPORT INFORMATION
  Report Type: Report from Study
  Country: TH (occurrence: TH)
  Receive Date: 20150619
  Receipt Date: 20150706
  Transmission Date: 20151125
  Serious: Yes (Death, Hospitalization)
  Sender: FDA-Public Use
  Company Number: PHHY2015TH072138

PATIENT
  Sex: Female

DRUGS (2)
  1. HYDROXYUREA. [Suspect]
     Active Substance: HYDROXYUREA
     Indication: PRODUCT USED FOR UNKNOWN INDICATION
     Dosage: 2 DF, TID 2 CAPSULE
     Route: 065
  2. TASIGNA [Suspect]
     Active Substance: NILOTINIB
     Indication: CHRONIC MYELOID LEUKAEMIA
     Dosage: 400 MG, BID (1 TO 2 YEARS)
     Route: 065

REACTIONS (6)
  - Upper gastrointestinal haemorrhage [Fatal]
  - Sepsis [Fatal]
  - White blood cell count increased [Unknown]
  - Splenomegaly [Unknown]
  - Neutrophil count decreased [Unknown]
  - Blood disorder [Unknown]
